FAERS Safety Report 13338911 (Version 12)
Quarter: 2017Q4

REPORT INFORMATION
  Report Type: Spontaneous
  Country: US (occurrence: US)
  Receive Date: 20170315
  Receipt Date: 20171103
  Transmission Date: 20180320
  Serious: Yes (Congenital Anomaly, Other)
  Sender: FDA-Public Use
  Company Number: PHEH2017US007363

PATIENT
  Sex: Female

DRUGS (3)
  1. ONDANSETRON [Suspect]
     Active Substance: ONDANSETRON
     Indication: FOETAL EXPOSURE DURING PREGNANCY
     Dosage: MOTHER^S DOSE: 04 MG, PRN
     Route: 064
  2. ONDANSETRON TEVA [Suspect]
     Active Substance: ONDANSETRON
     Indication: FOETAL EXPOSURE DURING PREGNANCY
     Dosage: MOTHER^S DOSE: 04 MG, Q8H
     Route: 064
  3. ZOFRAN [Suspect]
     Active Substance: ONDANSETRON HYDROCHLORIDE
     Indication: FOETAL EXPOSURE DURING PREGNANCY
     Route: 064

REACTIONS (73)
  - Hyperbilirubinaemia neonatal [Unknown]
  - Haematochezia [Unknown]
  - Cellulitis [Unknown]
  - Aortic valve incompetence [Unknown]
  - Foetal growth restriction [Unknown]
  - Mobility decreased [Unknown]
  - Myositis [Unknown]
  - Upper respiratory tract infection [Unknown]
  - Low birth weight baby [Unknown]
  - Dermatitis contact [Unknown]
  - Dyspnoea [Unknown]
  - Patent ductus arteriosus [Unknown]
  - Arthritis bacterial [Unknown]
  - Bundle branch block right [Unknown]
  - Carotid artery stenosis [Unknown]
  - Leukopenia [Unknown]
  - Decreased appetite [Unknown]
  - Transposition of the great vessels [Unknown]
  - Laevocardia [Unknown]
  - Pulmonary valve incompetence [Unknown]
  - Neonatal tachycardia [Unknown]
  - Skin irritation [Unknown]
  - Heart disease congenital [Unknown]
  - Congenital pulmonary valve atresia [Unknown]
  - Ventricular septal defect [Unknown]
  - Atrial septal defect [Unknown]
  - Double outlet right ventricle [Unknown]
  - Right aortic arch [Unknown]
  - Hypotonia neonatal [Unknown]
  - Sepsis neonatal [Unknown]
  - Mitral valve incompetence [Unknown]
  - Ventricular tachycardia [Unknown]
  - Right ventricular hypertrophy [Unknown]
  - Diarrhoea neonatal [Recovering/Resolving]
  - Foetal exposure during pregnancy [Unknown]
  - Injury [Unknown]
  - Eczema [Unknown]
  - Nasal congestion [Unknown]
  - Cardiomegaly [Unknown]
  - Cerebrovascular accident [Unknown]
  - Osteomyelitis [Unknown]
  - Staphylococcal bacteraemia [Unknown]
  - Arthralgia [Unknown]
  - Peripheral swelling [Unknown]
  - Sleep apnoea syndrome [Unknown]
  - Dysphagia [Unknown]
  - Cough [Unknown]
  - Rash [Unknown]
  - Heterotaxia [Unknown]
  - Tricuspid valve incompetence [Unknown]
  - Intestinal perforation [Unknown]
  - Cyanosis neonatal [Unknown]
  - Left ventricular enlargement [Unknown]
  - Lung hyperinflation [Unknown]
  - White blood cell count decreased [Unknown]
  - Fluid retention [Unknown]
  - Muscular weakness [Unknown]
  - Rhinorrhoea [Unknown]
  - Vascular insufficiency [Unknown]
  - Left-to-right cardiac shunt [Unknown]
  - Pneumonia [Unknown]
  - Pericardial effusion [Unknown]
  - Oesophageal dilatation [Unknown]
  - Joint effusion [Unknown]
  - Neonatal respiratory distress syndrome [Unknown]
  - Deep vein thrombosis [Unknown]
  - Respiratory tract infection [Unknown]
  - Right atrial enlargement [Unknown]
  - Neonatal hypoxia [Unknown]
  - Fever neonatal [Unknown]
  - Cardiac murmur [Unknown]
  - Hepatomegaly [Unknown]
  - Dermatitis diaper [Unknown]
